FAERS Safety Report 21290137 (Version 1)
Quarter: 2022Q3

REPORT INFORMATION
  Report Type: Spontaneous
  Country: IN (occurrence: IN)
  Receive Date: 20220902
  Receipt Date: 20220902
  Transmission Date: 20221027
  Serious: Yes (Other)
  Sender: FDA-Public Use
  Company Number: IN-GLAXOSMITHKLINE-INCH2022APC030687

PATIENT

DRUGS (1)
  1. DICLOFENAC SODIUM [Suspect]
     Active Substance: DICLOFENAC SODIUM
     Indication: Pain
     Dosage: UNK
     Route: 048

REACTIONS (4)
  - Generalised bullous fixed drug eruption [Recovered/Resolved]
  - Skin lesion [Recovered/Resolved]
  - Skin erosion [Recovered/Resolved]
  - Skin hyperpigmentation [Unknown]
